FAERS Safety Report 8037868-6 (Version None)
Quarter: 2012Q1

REPORT INFORMATION
  Report Type: 
  Country: None (occurrence: None)
  Receive Date: 20120111
  Receipt Date: 20120104
  Transmission Date: 20120608
  Serious: Yes (Hospitalization)
  Sender: FDA-Public Use
  Company Number: PHHY2011NL87898

PATIENT
  Age: 40 Year
  Sex: Male

DRUGS (1)
  1. CLOZAPINE [Suspect]
     Indication: SCHIZOPHRENIA
     Dosage: UNK

REACTIONS (20)
  - NITRITE URINE PRESENT [None]
  - URINARY TRACT INFECTION [None]
  - DIARRHOEA [None]
  - DIZZINESS [None]
  - BLOOD UREA INCREASED [None]
  - HYPERHIDROSIS [None]
  - BODY TEMPERATURE INCREASED [None]
  - BLOOD CREATINE INCREASED [None]
  - MUCOSAL DRYNESS [None]
  - SKIN TURGOR DECREASED [None]
  - EOSINOPHILIC COLITIS [None]
  - TACHYCARDIA [None]
  - WEIGHT DECREASED [None]
  - EOSINOPHILIA [None]
  - URINE ELECTROLYTES INCREASED [None]
  - C-REACTIVE PROTEIN INCREASED [None]
  - DEHYDRATION [None]
  - HEART RATE INCREASED [None]
  - LYMPHOCYTE MORPHOLOGY ABNORMAL [None]
  - WHITE BLOOD CELL COUNT INCREASED [None]
